FAERS Safety Report 6804885-0 (Version None)
Quarter: 2010Q2

REPORT INFORMATION
  Report Type: 
  Country: None (occurrence: None)
  Receive Date: 20100628
  Receipt Date: 20070529
  Transmission Date: 20101027
  Serious: No
  Sender: FDA-Public Use
  Company Number: US-PFIZER INC-2007044337

PATIENT
  Sex: Female
  Weight: 100 kg

DRUGS (8)
  1. GEODON [Suspect]
  2. CHANTIX [Interacting]
     Indication: SMOKING CESSATION THERAPY
     Dates: start: 20070101
  3. DRUG, UNSPECIFIED [Interacting]
  4. KLONOPIN [Concomitant]
  5. INDERAL [Concomitant]
  6. PAXIL [Concomitant]
  7. PRILOSEC [Concomitant]
     Indication: DYSPEPSIA
  8. MULTI-VITAMINS [Concomitant]

REACTIONS (4)
  - DRUG INEFFECTIVE [None]
  - DRUG INTERACTION [None]
  - TINNITUS [None]
  - TREMOR [None]
